FAERS Safety Report 8135493-X (Version None)
Quarter: 2012Q1

REPORT INFORMATION
  Report Type: 
  Country: None (occurrence: None)
  Receive Date: 20120103
  Receipt Date: 20111111
  Transmission Date: 20120608
  Serious: No
  Sender: FDA-Public Use
  Company Number: AE-2011-003393

PATIENT
  Age: 62 Year
  Sex: Male
  Weight: 180 kg

DRUGS (5)
  1. RIBAVIRIN [Concomitant]
  2. PEGASYS [Concomitant]
  3. PROCRIT [Concomitant]
  4. INCIVEK [Suspect]
     Dosage: 2250 MG (750 MG, 1 IN 8 HR), ORAL
     Route: 048
     Dates: start: 20110823
  5. GABAPENTIN [Concomitant]

REACTIONS (4)
  - DIZZINESS [None]
  - VISION BLURRED [None]
  - DYSPNOEA [None]
  - ANAL HAEMORRHAGE [None]
